FAERS Safety Report 12251952 (Version 1)
Quarter: 2016Q2

REPORT INFORMATION
  Report Type: Spontaneous
  Country: CN (occurrence: CN)
  Receive Date: 20160411
  Receipt Date: 20160411
  Transmission Date: 20160815
  Serious: Yes (Life-Threatening, Hospitalization)
  Sender: FDA-Public Use
  Company Number: CN-ROCHE-1739398

PATIENT
  Age: 65 Year
  Sex: Female

DRUGS (2)
  1. AISU [Concomitant]
     Indication: BREAST CANCER
     Route: 041
     Dates: start: 20151024, end: 20151024
  2. XELODA [Suspect]
     Active Substance: CAPECITABINE
     Indication: BREAST CANCER
     Route: 048
     Dates: start: 20151024, end: 20151101

REACTIONS (4)
  - Peptic ulcer [Recovering/Resolving]
  - Diarrhoea [Unknown]
  - Vomiting [Recovering/Resolving]
  - Mouth ulceration [Recovering/Resolving]

NARRATIVE: CASE EVENT DATE: 20151028
